FAERS Safety Report 6240890-3 (Version None)
Quarter: 2009Q2

REPORT INFORMATION
  Report Type: 
  Country: None (occurrence: None)
  Receive Date: 20090623
  Receipt Date: 20090604
  Transmission Date: 20091009
  Serious: Yes (Other)
  Sender: FDA-Public Use
  Company Number: US-BAYER-200911758BCC

PATIENT
  Age: 16 Year
  Sex: Female
  Weight: 59 kg

DRUGS (2)
  1. MIDOL (NOT OTHERWISE SPECIFIED) [Suspect]
     Indication: DYSMENORRHOEA
     Route: 048
     Dates: start: 20090602, end: 20090602
  2. MIDOL TEEN [Suspect]
     Indication: DYSMENORRHOEA
     Route: 048
     Dates: start: 20090602

REACTIONS (6)
  - AMNESIA [None]
  - ASTHENIA [None]
  - DELIRIUM [None]
  - FATIGUE [None]
  - FEELING ABNORMAL [None]
  - SOMNOLENCE [None]
